FAERS Safety Report 14157113 (Version 1)
Quarter: 2017Q4

REPORT INFORMATION
  Report Type: Spontaneous
  Country: CN (occurrence: CN)
  Receive Date: 20171103
  Receipt Date: 20171103
  Transmission Date: 20180321
  Serious: Yes (Hospitalization)
  Sender: FDA-Public Use
  Company Number: CN-PFIZER INC-2017472485

PATIENT
  Age: 55 Year
  Sex: Female
  Weight: 49.2 kg

DRUGS (2)
  1. MEDROL [Suspect]
     Active Substance: METHYLPREDNISOLONE
     Dosage: UNK
     Route: 048
     Dates: start: 20170717, end: 20170905
  2. MEDROL [Suspect]
     Active Substance: METHYLPREDNISOLONE
     Indication: IMMUNOSUPPRESSION
     Dosage: 40 MG, 1X/DAY
     Route: 048
     Dates: start: 20170616, end: 20170716

REACTIONS (4)
  - Weight increased [Unknown]
  - Eye pain [Unknown]
  - Tremor [Unknown]
  - Muscle spasms [Unknown]

NARRATIVE: CASE EVENT DATE: 20170716
